FAERS Safety Report 21007651 (Version 4)
Quarter: 2023Q1

REPORT INFORMATION
  Report Type: Other
  Country: CA (occurrence: CA)
  Receive Date: 20220627
  Receipt Date: 20230316
  Transmission Date: 20230418
  Serious: Yes (Life-Threatening, Hospitalization, Other)
  Sender: FDA-Public Use
  Company Number: CA-CELLTRION INC.-2022CA009763

PATIENT

DRUGS (14)
  1. RITUXIMAB [Suspect]
     Active Substance: RITUXIMAB
     Indication: Product used for unknown indication
     Dosage: UNK
     Route: 065
  2. RITUXIMAB [Suspect]
     Active Substance: RITUXIMAB
     Dosage: UNK
     Route: 065
  3. ELTROMBOPAG OLAMINE [Suspect]
     Active Substance: ELTROMBOPAG OLAMINE
     Indication: Immune thrombocytopenia
     Dosage: 25 MILLIGRAM, 1 EVERY 1 DAYS
     Route: 048
  4. ELTROMBOPAG OLAMINE [Suspect]
     Active Substance: ELTROMBOPAG OLAMINE
     Indication: Immune thrombocytopenia
     Dosage: 50 MILLIGRAM, 1 EVERY 1 DAYS
     Route: 048
  5. ELTROMBOPAG OLAMINE [Suspect]
     Active Substance: ELTROMBOPAG OLAMINE
     Indication: Immune thrombocytopenia
     Dosage: 75 MG, 1 EVERY 1 DAYS
     Route: 048
  6. ELTROMBOPAG OLAMINE [Suspect]
     Active Substance: ELTROMBOPAG OLAMINE
     Dosage: 50 MG, 1 EVERY 1 DAYS
     Route: 048
  7. ELTROMBOPAG OLAMINE [Suspect]
     Active Substance: ELTROMBOPAG OLAMINE
     Dosage: 25 MG
     Route: 048
  8. ELTROMBOPAG OLAMINE [Suspect]
     Active Substance: ELTROMBOPAG OLAMINE
     Dosage: UNK
     Route: 048
  9. ELTROMBOPAG OLAMINE [Suspect]
     Active Substance: ELTROMBOPAG OLAMINE
     Dosage: 75 MG, 1 EVERY 1 DAYS
     Route: 048
  10. ELTROMBOPAG OLAMINE [Suspect]
     Active Substance: ELTROMBOPAG OLAMINE
     Dosage: UNK
     Route: 065
  11. FOLIC ACID [Concomitant]
     Active Substance: FOLIC ACID
     Dosage: 5 MILLIGRAM, 1 EVERY 1 DAYS
     Route: 065
  12. CYANOCOBALAMIN\FOLIC ACID [Concomitant]
     Active Substance: CYANOCOBALAMIN\FOLIC ACID
     Dosage: 1000 MICROGRAM
     Route: 065
  13. PREDNISONE [Concomitant]
     Active Substance: PREDNISONE
     Dosage: 100 MILLIGRAM, 1 EVERY 1 DAYS
     Route: 065
  14. WARFARIN [Concomitant]
     Active Substance: WARFARIN
     Dosage: 40 MG
     Route: 065

REACTIONS (25)
  - Apathy [Recovered/Resolved]
  - Autoimmune haemolytic anaemia [Recovered/Resolved]
  - Contusion [Recovered/Resolved]
  - Dry mouth [Recovered/Resolved]
  - Fall [Recovered/Resolved]
  - Feeling abnormal [Recovered/Resolved]
  - Head injury [Recovered/Resolved]
  - Immune thrombocytopenia [Recovered/Resolved]
  - Limb injury [Recovered/Resolved]
  - Oesophageal haemorrhage [Recovered/Resolved]
  - Peripheral coldness [Recovered/Resolved]
  - Platelet count increased [Recovered/Resolved]
  - Arthralgia [Recovered/Resolved]
  - Asthenia [Recovered/Resolved]
  - Atrial fibrillation [Recovered/Resolved]
  - Back pain [Recovered/Resolved]
  - Dizziness [Recovered/Resolved]
  - Fatigue [Recovered/Resolved]
  - Gait disturbance [Recovered/Resolved]
  - Headache [Recovered/Resolved]
  - Pain in extremity [Recovered/Resolved]
  - Peripheral swelling [Recovered/Resolved]
  - Disease recurrence [Recovered/Resolved]
  - Treatment failure [Recovered/Resolved]
  - Wrong technique in product usage process [Recovered/Resolved]
